FAERS Safety Report 4778932-4 (Version None)
Quarter: 2005Q3

REPORT INFORMATION
  Report Type: 
  Country: None (occurrence: None)
  Receive Date: 20050922
  Receipt Date: 20050913
  Transmission Date: 20060218
  Serious: Yes (Death)
  Sender: FDA-Public Use
  Company Number: CERZ-10990

PATIENT
  Age: 22 Year
  Sex: Female

DRUGS (1)
  1. CEREZYME [Suspect]
     Indication: GAUCHER'S DISEASE
     Dosage: 15 U/KG Q2WKS IV
     Route: 042
     Dates: start: 19990501, end: 20050824

REACTIONS (2)
  - ARRHYTHMIA [None]
  - SUDDEN DEATH [None]
